FAERS Safety Report 9066153 (Version 7)
Quarter: 2013Q2

REPORT INFORMATION
  Report Type: Report from Study
  Country: US (occurrence: US)
  Receive Date: 20130214
  Receipt Date: 20130528
  Transmission Date: 20140414
  Serious: No
  Sender: FDA-Public Use
  Company Number: US-VERTEX PHARMACEUTICALS INC.-2013-001995

PATIENT
  Age: 35 Year
  Sex: Female
  Weight: 71 kg

DRUGS (10)
  1. VX-950 (TELAPREVIR) [Suspect]
     Indication: HEPATITIS C
     Dosage: 750 MG, TID
     Route: 048
     Dates: start: 20130208
  2. PEGASYS [Suspect]
     Indication: HEPATITIS C
     Dosage: 180 ?G, QW
     Route: 058
     Dates: start: 20130208
  3. RIBASPHERE [Suspect]
     Indication: HEPATITIS C
     Dosage: 1000 MG, QD
     Route: 048
     Dates: start: 20130208
  4. RIBASPHERE [Suspect]
     Dosage: UNK
     Route: 048
  5. ADVIL [Concomitant]
     Dosage: 200 MG, PRN
     Route: 048
  6. CORTAID [Concomitant]
     Dosage: UNK, QD
     Route: 061
  7. ATRIPLA [Concomitant]
     Dosage: 1 DF, QD
     Route: 048
  8. FISH OIL [Concomitant]
     Dosage: 1000 MG, UNK
  9. ALEVE [Concomitant]
     Indication: PAIN
     Dosage: UNK
     Route: 048
  10. MOTRIN [Concomitant]
     Indication: PAIN
     Route: 048

REACTIONS (11)
  - Dyspnoea [Not Recovered/Not Resolved]
  - Muscle spasms [Recovered/Resolved]
  - Headache [Recovered/Resolved]
  - Influenza like illness [Recovered/Resolved]
  - Pyrexia [Recovered/Resolved]
  - Rhinorrhoea [Not Recovered/Not Resolved]
  - Nasopharyngitis [Not Recovered/Not Resolved]
  - Chills [Recovered/Resolved]
  - Fatigue [Not Recovered/Not Resolved]
  - Anaemia [Recovered/Resolved]
  - Nausea [Not Recovered/Not Resolved]
